FAERS Safety Report 5694421-7 (Version None)
Quarter: 2008Q2

REPORT INFORMATION
  Report Type: 
  Country: None (occurrence: None)
  Receive Date: 20080403
  Receipt Date: 20080403
  Transmission Date: 20081010
  Serious: Yes (Other)
  Sender: FDA-Public Use
  Company Number: None

PATIENT
  Age: 55 Year
  Sex: Female
  Weight: 75.5239 kg

DRUGS (7)
  1. SINGULAIR [Suspect]
     Indication: ASTHMA
     Dosage: 10MG DAILY PO
     Route: 048
     Dates: start: 20080310, end: 20080402
  2. SINGULAIR [Suspect]
     Indication: HYPERSENSITIVITY
     Dosage: 10MG DAILY PO
     Route: 048
     Dates: start: 20080310, end: 20080402
  3. LAMOTRIGINE [Concomitant]
  4. BENAZEPRIL HYDROCHLORIDE [Concomitant]
  5. ASMANEX TWISTHALER [Concomitant]
  6. NASONEX [Concomitant]
  7. PROAIR HFA [Concomitant]

REACTIONS (4)
  - IRRITABILITY [None]
  - MOOD SWINGS [None]
  - PHARMACEUTICAL PRODUCT COMPLAINT [None]
  - TEARFULNESS [None]
